FAERS Safety Report 8591777-2 (Version None)
Quarter: 2012Q3

REPORT INFORMATION
  Report Type: 
  Country: None (occurrence: None)
  Receive Date: 20120803
  Receipt Date: 20120803
  Transmission Date: 20120928
  Serious: Yes (Other)
  Sender: FDA-Public Use
  Company Number: None

PATIENT
  Age: 79 Year
  Sex: Male
  Weight: 100 kg

DRUGS (2)
  1. RITUXIMAB [Suspect]
     Indication: WALDENSTROM'S MACROGLOBULINAEMIA
     Dosage: 900 MG ONCE IV
     Route: 042
     Dates: start: 20110608, end: 20110608
  2. BORTEZOMIB [Suspect]
     Indication: WALDENSTROM'S MACROGLOBULINAEMIA
     Dosage: 2.4 MG QWEEK IV
     Route: 042
     Dates: start: 20110421, end: 20120312

REACTIONS (4)
  - CHILLS [None]
  - DELIRIUM [None]
  - INFUSION RELATED REACTION [None]
  - CONFUSIONAL STATE [None]
